FAERS Safety Report 8306177-X (Version None)
Quarter: 2012Q2

REPORT INFORMATION
  Report Type: 
  Country: None (occurrence: None)
  Receive Date: 20120423
  Receipt Date: 20120418
  Transmission Date: 20120825
  Serious: Yes (Other)
  Sender: FDA-Public Use
  Company Number: AU-AMGEN-AUSSP2012024553

PATIENT

DRUGS (2)
  1. NPLATE [Suspect]
     Indication: PRODUCT USED FOR UNKNOWN INDICATION
     Dosage: 10 MG/KG, UNK
  2. CORTICOSTEROIDS [Concomitant]

REACTIONS (3)
  - PLATELET COUNT DECREASED [None]
  - DRUG INEFFECTIVE [None]
  - DRUG EFFECT DECREASED [None]
